FAERS Safety Report 21044322 (Version 1)
Quarter: 2022Q3

REPORT INFORMATION
  Report Type: Spontaneous
  Country: US (occurrence: None)
  Receive Date: 20220703
  Receipt Date: 20220703
  Transmission Date: 20221027
  Serious: Yes (Disabling)
  Sender: FDA-Public Use
  Company Number: None

PATIENT
  Age: 29 Year
  Weight: 74.25 kg

DRUGS (3)
  1. BUPROPION HYDROCHLORIDE [Suspect]
     Active Substance: BUPROPION HYDROCHLORIDE
     Indication: Depression
     Dosage: OTHER QUANTITY : 1 CAPSULE(S) ?
     Route: 048
  2. Claritin (allergy medication) [Concomitant]
  3. Vitamin D (supplement) [Concomitant]

REACTIONS (6)
  - Drug hypersensitivity [None]
  - Manufacturing materials issue [None]
  - Arthralgia [None]
  - Musculoskeletal stiffness [None]
  - Palpitations [None]
  - Depression [None]

NARRATIVE: CASE EVENT DATE: 20220609
